FAERS Safety Report 5520526-7 (Version None)
Quarter: 2007Q4

REPORT INFORMATION
  Report Type: 
  Country: None (occurrence: None)
  Receive Date: 20071119
  Receipt Date: 20071105
  Transmission Date: 20080405
  Serious: Yes (Death, Other)
  Sender: FDA-Public Use
  Company Number: US-PFIZER INC-2007093997

PATIENT
  Sex: Female
  Weight: 92.3 kg

DRUGS (17)
  1. ZOLOFT [Suspect]
  2. DIAZEPAM [Suspect]
     Dates: end: 20070901
  3. TRAZODONE HYDROCHLORIDE [Suspect]
  4. THEOPHYLLINE [Suspect]
  5. KADIAN ^KNOLL^ [Suspect]
     Indication: BACK PAIN
     Dates: start: 20070829, end: 20070801
  6. PERCOCET [Suspect]
  7. LYRICA [Concomitant]
  8. IMITREX [Concomitant]
     Dates: end: 20070101
  9. BENICAR [Concomitant]
     Dates: end: 20070101
  10. VYTORIN [Concomitant]
     Dates: end: 20070101
  11. PREVACID [Concomitant]
     Dates: end: 20070101
  12. LEVSIN [Concomitant]
     Dates: end: 20070101
  13. NAPROSYN [Concomitant]
  14. AMITRIPTYLINE [Concomitant]
  15. PROPOXYPHENE HYDROCHLORIDE [Concomitant]
     Dates: end: 20070901
  16. CYCLOBENZAPRINE HCL [Concomitant]
  17. ZOLPIDEM TARTRATE [Concomitant]

REACTIONS (20)
  - AORTIC ARTERIOSCLEROSIS [None]
  - AORTIC CALCIFICATION [None]
  - AORTIC VALVE CALCIFICATION [None]
  - AORTIC VALVE STENOSIS [None]
  - ASPIRATION [None]
  - CARDIAC HYPERTROPHY [None]
  - CARDIOMEGALY [None]
  - CONTUSION [None]
  - COUGH [None]
  - DEATH [None]
  - DEHYDRATION [None]
  - HEPATIC STEATOSIS [None]
  - HEPATOMEGALY [None]
  - INFLAMMATION [None]
  - PULMONARY CONGESTION [None]
  - PULMONARY OEDEMA [None]
  - SKIN STRIAE [None]
  - SOMNOLENCE [None]
  - SPLEEN CONGESTION [None]
  - VOMITING [None]
